FAERS Safety Report 17739936 (Version 1)
Quarter: 2020Q2

REPORT INFORMATION
  Report Type: Spontaneous
  Country: US (occurrence: US)
  Receive Date: 20200502
  Receipt Date: 20200502
  Transmission Date: 20200714
  Serious: No
  Sender: FDA-Public Use
  Company Number: None

PATIENT
  Age: 8 Year
  Sex: Male
  Weight: 26.1 kg

DRUGS (3)
  1. MONTELUKAST SODIUM CHEWABLE TABLET USP 5 MG* [Suspect]
     Active Substance: MONTELUKAST SODIUM
     Indication: ASTHMA
     Dosage: ?          QUANTITY:30 TABLET(S);?
     Route: 048
     Dates: start: 20200425, end: 20200502
  2. MONTELUKAST SODIUM CHEWABLE TABLET USP 5 MG* [Suspect]
     Active Substance: MONTELUKAST SODIUM
     Indication: HYPERSENSITIVITY
     Dosage: ?          QUANTITY:30 TABLET(S);?
     Route: 048
     Dates: start: 20200425, end: 20200502
  3. MONTELUKAST ALBUTEROL [Concomitant]

REACTIONS (9)
  - Decreased interest [None]
  - Fear of death [None]
  - Crying [None]
  - Tachyphrenia [None]
  - Sleep disorder [None]
  - Emotional disorder [None]
  - Irritability [None]
  - Agitation [None]
  - Fatigue [None]

NARRATIVE: CASE EVENT DATE: 20200502
